FAERS Safety Report 16883812 (Version 1)
Quarter: 2019Q4

REPORT INFORMATION
  Report Type: Spontaneous
  Country: US (occurrence: US)
  Receive Date: 20190808
  Receipt Date: 20190808
  Transmission Date: 20200122
  Serious: Yes (Hospitalization)
  Sender: FDA-Public Use
  Company Number: None

PATIENT
  Age: 36 Year
  Sex: Female
  Weight: 63.5 kg

DRUGS (12)
  1. PROCHLORPERAZINE MALEATE. [Concomitant]
     Active Substance: PROCHLORPERAZINE MALEATE
  2. NIVOLUMAB - 240MG [Suspect]
     Active Substance: NIVOLUMAB
     Indication: OVARIAN CANCER METASTATIC
     Route: 042
     Dates: start: 20190508, end: 20190508
  3. SERTRALINE [Concomitant]
     Active Substance: SERTRALINE HYDROCHLORIDE
  4. DOCUSATE SODIUM [COLACE] [Concomitant]
  5. HYDROCORTISON [PROCTOSOL HC] [Concomitant]
  6. LORAZEPAM. [Concomitant]
     Active Substance: LORAZEPAM
  7. APIXABAN[ELIQUIS] [Concomitant]
  8. ATOVAQUONE. [Concomitant]
     Active Substance: ATOVAQUONE
  9. RUCAPARIB - 600 MG [Suspect]
     Active Substance: RUCAPARIB
     Indication: OVARIAN CANCER METASTATIC
     Route: 048
  10. LOSARTAN. [Concomitant]
     Active Substance: LOSARTAN
  11. PREDNISONE. [Concomitant]
     Active Substance: PREDNISONE
  12. TRAZODONE [Concomitant]
     Active Substance: TRAZODONE HYDROCHLORIDE

REACTIONS (7)
  - Rash [None]
  - Alanine aminotransferase increased [None]
  - Aspartate aminotransferase increased [None]
  - Decreased appetite [None]
  - Abdominal pain upper [None]
  - Autoimmune colitis [None]
  - Nausea [None]

NARRATIVE: CASE EVENT DATE: 20190801
